FAERS Safety Report 23171724 (Version 2)
Quarter: 2023Q4

REPORT INFORMATION
  Report Type: Spontaneous
  Country: US (occurrence: None)
  Receive Date: 20231110
  Receipt Date: 20231117
  Transmission Date: 20240110
  Serious: Yes (Hospitalization, Other)
  Sender: FDA-Public Use
  Company Number: 2023A252604

PATIENT
  Age: 72 Year
  Sex: Male

DRUGS (3)
  1. SYMBICORT [Suspect]
     Active Substance: BUDESONIDE\FORMOTEROL FUMARATE DIHYDRATE
     Indication: Chronic obstructive pulmonary disease
     Dosage: 160 UG, 4 PUFFS A DAY WHICH IS 2 IN MORNING AND 2 BEFORE BED
     Route: 055
     Dates: start: 2010
  2. SYMBICORT [Suspect]
     Active Substance: BUDESONIDE\FORMOTEROL FUMARATE DIHYDRATE
     Indication: Emphysema
     Dosage: 160 UG, 4 PUFFS A DAY WHICH IS 2 IN MORNING AND 2 BEFORE BED
     Route: 055
     Dates: start: 2010
  3. IPRATROPIUM [Concomitant]
     Active Substance: IPRATROPIUM

REACTIONS (11)
  - COVID-19 [Unknown]
  - Visual impairment [Not Recovered/Not Resolved]
  - Macular degeneration [Not Recovered/Not Resolved]
  - Eye haemorrhage [Not Recovered/Not Resolved]
  - Dyspnoea [Unknown]
  - Product dose omission issue [Unknown]
  - Intentional device misuse [Unknown]
  - Drug effect less than expected [Unknown]
  - Device malfunction [Unknown]
  - Product taste abnormal [Unknown]
  - Device delivery system issue [Unknown]

NARRATIVE: CASE EVENT DATE: 20200101
